FAERS Safety Report 8107485-8 (Version None)
Quarter: 2011Q4

REPORT INFORMATION
  Report Type: 
  Country: None (occurrence: None)
  Receive Date: 20111227
  Receipt Date: 20111122
  Transmission Date: 20120403
  Serious: No
  Sender: FDA-Public Use
  Company Number: PHEH2011US010216

PATIENT
  Age: 56 Year
  Sex: Female
  Weight: 72.6 kg

DRUGS (8)
  1. ASPIRIN [Concomitant]
  2. NUVIGIL [Concomitant]
  3. ADVIL (MEFENAMIC ACID) [Concomitant]
  4. BENICAR [Concomitant]
  5. MULTIVITAMINS (ASCORBIC ACID, ERGOCALCIFEROL, FOLIC ACID, NICOTINAMIDE [Concomitant]
  6. MILNACIPRAN (MILNACIPRAN) [Concomitant]
  7. GILENYA [Suspect]
     Dosage: 0.5 MG, QD, ORAL
     Route: 048
  8. ACETAMINOPHEN [Concomitant]

REACTIONS (2)
  - RASH [None]
  - DIARRHOEA [None]
